FAERS Safety Report 9708769 (Version 1)
Quarter: 2013Q4

REPORT INFORMATION
  Report Type: Report from Study
  Country: US (occurrence: US)
  Receive Date: 20131125
  Receipt Date: 20131125
  Transmission Date: 20140711
  Serious: Yes (Hospitalization)
  Sender: FDA-Public Use
  Company Number: US-GLAXOSMITHKLINE-Z0013547B

PATIENT
  Age: 78 Year
  Sex: Female
  Weight: 64 kg

DRUGS (21)
  1. TRAMETINIB [Suspect]
     Indication: NON-SMALL CELL LUNG CANCER
     Dosage: 2MG PER DAY
     Route: 048
     Dates: start: 20111214
  2. PARACETAMOL [Concomitant]
  3. AMLODIPINE [Concomitant]
  4. ASPIRIN [Concomitant]
  5. ATORVASTATIN CALCIUM [Concomitant]
  6. CLOPIDOGREL BISULPHATE [Concomitant]
  7. DIPHENOXYLATE HYDROCHLORIDE + ATROPINE SULFATE [Concomitant]
  8. GUAIPHENESIN [Concomitant]
  9. HEPARIN [Concomitant]
  10. INSULIN LISPRO [Concomitant]
  11. IPRATROPIUM BROMIDE [Concomitant]
  12. LEVOSALBUTAMOL [Concomitant]
  13. THYROXINE SODIUM [Concomitant]
  14. MAGNESIUM OXIDE [Concomitant]
  15. METOPROLOL [Concomitant]
  16. MORPHINE [Concomitant]
  17. ONDANSETRON HYDROCHLORIDE [Concomitant]
  18. PANTOPRAZOLE [Concomitant]
  19. PROMETHAZINE [Concomitant]
  20. SODIUM CHLORIDE [Concomitant]
  21. TIOTROPIUM [Concomitant]

REACTIONS (1)
  - Vomiting [Recovered/Resolved]
